FAERS Safety Report 7512088-X (Version None)
Quarter: 2011Q2

REPORT INFORMATION
  Report Type: 
  Country: None (occurrence: None)
  Receive Date: 20110519
  Receipt Date: 20110504
  Transmission Date: 20111010
  Serious: Yes (Death)
  Sender: FDA-Public Use
  Company Number: 1000020918

PATIENT
  Age: 32 Year
  Sex: Male

DRUGS (6)
  1. METHADONE HCL [Concomitant]
  2. DRONABINOL [Concomitant]
  3. ETHANOL (ETHANOL [Suspect]
  4. DIAZEPAM [Suspect]
  5. CITALOPRAM HYDROBROMIDE [Suspect]
  6. NORDIAZEPAM (NORDAZEPAM) [Concomitant]

REACTIONS (4)
  - HEPATIC STEATOSIS [None]
  - DRUG INTERACTION [None]
  - TOXICITY TO VARIOUS AGENTS [None]
  - ACCIDENTAL DEATH [None]
